FAERS Safety Report 24446959 (Version 1)
Quarter: 2024Q4

REPORT INFORMATION
  Report Type: Spontaneous
  Country: US (occurrence: US)
  Receive Date: 20241016
  Receipt Date: 20241016
  Transmission Date: 20250114
  Serious: No
  Sender: NOVO NORDISK
  Company Number: US-NOVOPROD-1279755

PATIENT
  Age: 49 Year
  Sex: Male

DRUGS (1)
  1. SOMAPACITAN [Suspect]
     Active Substance: SOMAPACITAN
     Indication: Product used for unknown indication
     Dosage: 1.5 MG, QW
     Route: 058
     Dates: start: 20240718

REACTIONS (3)
  - Tonsillolith [Unknown]
  - Pollakiuria [Unknown]
  - Feeling of body temperature change [Unknown]

NARRATIVE: CASE EVENT DATE: 20240718
